FAERS Safety Report 11685150 (Version 1)
Quarter: 2015Q4

REPORT INFORMATION
  Report Type: Spontaneous
  Country: US (occurrence: None)
  Receive Date: 20151029
  Receipt Date: 20151029
  Transmission Date: 20160304
  Serious: Yes (Death, Hospitalization)
  Sender: FDA-Public Use
  Company Number: None

PATIENT
  Age: 2 Year
  Sex: Male
  Weight: 13.7 kg

DRUGS (5)
  1. VINCRISTINE SULFATE. [Suspect]
     Active Substance: VINCRISTINE SULFATE
     Dates: end: 20151019
  2. METHOTREXATE [Suspect]
     Active Substance: METHOTREXATE
     Dates: end: 20151005
  3. DEXAMETHASONE. [Suspect]
     Active Substance: DEXAMETHASONE
     Dates: end: 20151025
  4. DOXORUBICIN HYDROCHLORIDE. [Suspect]
     Active Substance: DOXORUBICIN HYDROCHLORIDE
     Dates: end: 20151019
  5. ONCASPAR [Suspect]
     Active Substance: PEGASPARGASE
     Dates: end: 20151008

REACTIONS (11)
  - Diarrhoea [None]
  - Acidosis [None]
  - Nausea [None]
  - Vomiting [None]
  - Pyrexia [None]
  - Neutropenia [None]
  - Sepsis [None]
  - Fungal infection [None]
  - Clostridium test positive [None]
  - Blood culture positive [None]
  - Pupil fixed [None]

NARRATIVE: CASE EVENT DATE: 20151026
